FAERS Safety Report 24139319 (Version 9)
Quarter: 2024Q4

REPORT INFORMATION
  Report Type: Spontaneous
  Country: CA (occurrence: CA)
  Receive Date: 20240726
  Receipt Date: 20241219
  Transmission Date: 20250115
  Serious: Yes (Other)
  Sender: CELLTRION
  Company Number: CA-PFIZER INC-202400049223

PATIENT

DRUGS (14)
  1. INFLECTRA [Suspect]
     Active Substance: INFLIXIMAB-DYYB
     Indication: Crohn^s disease
     Dosage: 5 MG/KG, EVERY 7 WEEKS
     Route: 042
     Dates: start: 20210719
  2. INFLECTRA [Suspect]
     Active Substance: INFLIXIMAB-DYYB
     Dosage: 5 MG/KG, EVERY 7 WEEKS
     Route: 042
     Dates: start: 20240102
  3. INFLECTRA [Suspect]
     Active Substance: INFLIXIMAB-DYYB
     Dosage: 5 MG/KG, EVERY 7 WEEKS
     Route: 042
     Dates: start: 20240102
  4. INFLECTRA [Suspect]
     Active Substance: INFLIXIMAB-DYYB
     Dosage: 5 MG/KG (330 MG), EVERY 7 WEEKS
     Route: 042
     Dates: start: 20240221
  5. INFLECTRA [Suspect]
     Active Substance: INFLIXIMAB-DYYB
     Dosage: 5 MG/KG (325MG), EVERY 7 WEEKS
     Route: 042
     Dates: start: 20240410
  6. INFLECTRA [Suspect]
     Active Substance: INFLIXIMAB-DYYB
     Dosage: 5 MG/KG (325 MG), EVERY 7 WEEKS
     Route: 042
     Dates: start: 20240529
  7. INFLECTRA [Suspect]
     Active Substance: INFLIXIMAB-DYYB
     Dosage: 5 MG/KG (325 MG), EVERY 7 WEEKS
     Route: 042
     Dates: start: 20240717
  8. INFLECTRA [Suspect]
     Active Substance: INFLIXIMAB-DYYB
     Dosage: 5 MG/KG (340 MG), AFTER 6 WEEKS AND 6 DAYS (PRESCRIBED EVERY 7 WEEKS)
     Route: 042
     Dates: start: 20240903
  9. INFLECTRA [Suspect]
     Active Substance: INFLIXIMAB-DYYB
     Dosage: 330 MG (5 MG/KG), AFTER 7 WEEKS AND 1 DAY (PRESCRIBED EVERY 7 WEEKS)
     Route: 042
     Dates: start: 20241023
  10. INFLECTRA [Suspect]
     Active Substance: INFLIXIMAB-DYYB
     Dosage: 330 MG (5 MG/KG), EVERY 7 WEEKS
     Route: 042
     Dates: start: 20241211
  11. PANTOPRAZOLE SODIUM [Concomitant]
     Active Substance: PANTOPRAZOLE SODIUM
     Dosage: 40 MG, 1X/DAY
  12. PANTOPRAZOLE [Concomitant]
     Active Substance: PANTOPRAZOLE
     Dosage: 40 MG
  13. PERINDOPRIL [Concomitant]
     Active Substance: PERINDOPRIL
     Dosage: 4 MG (FREQUENCY UNKNOWN)
     Route: 048
     Dates: end: 20230602
  14. PERINDOPRIL [Concomitant]
     Active Substance: PERINDOPRIL
     Dosage: 2 MG (FREQUENCY UNKNOWN)
     Route: 048
     Dates: start: 20230602

REACTIONS (5)
  - Condition aggravated [Not Recovered/Not Resolved]
  - Groin pain [Not Recovered/Not Resolved]
  - Asthenia [Not Recovered/Not Resolved]
  - Constipation [Not Recovered/Not Resolved]
  - Arthralgia [Not Recovered/Not Resolved]

NARRATIVE: CASE EVENT DATE: 20240101
